FAERS Safety Report 21280295 (Version 2)
Quarter: 2022Q4

REPORT INFORMATION
  Report Type: Spontaneous
  Country: JP (occurrence: JP)
  Receive Date: 20220901
  Receipt Date: 20221025
  Transmission Date: 20230113
  Serious: Yes (Other)
  Sender: FDA-Public Use
  Company Number: JP-TAIHO-AB220776_P_1

PATIENT
  Age: 76 Year
  Sex: Male

DRUGS (3)
  1. ABRAXANE [Suspect]
     Active Substance: PACLITAXEL
     Indication: Lung adenocarcinoma
     Dosage: NI
     Route: 041
  2. ABRAXANE [Suspect]
     Active Substance: PACLITAXEL
     Dosage: DETAILS NOT REPORTED, 6 CYCLES?PACLITAXEL INJECTION(SUSPENSION WITH CONTAINED ALBUMIN)
     Route: 041
  3. CARBOPLATIN [Suspect]
     Active Substance: CARBOPLATIN
     Indication: Lung adenocarcinoma
     Dosage: DETAILS NOT REPORTED, 6 CYCLES
     Route: 041

REACTIONS (1)
  - Aspergillus infection [Unknown]
